FAERS Safety Report 25221353 (Version 1)
Quarter: 2025Q2

REPORT INFORMATION
  Report Type: Spontaneous
  Country: US (occurrence: None)
  Receive Date: 20250421
  Receipt Date: 20250421
  Transmission Date: 20250716
  Serious: Yes (Hospitalization)
  Sender: FDA-CTU
  Company Number: None

PATIENT
  Age: 51 Year
  Sex: Female
  Weight: 91.8 kg

DRUGS (1)
  1. OZEMPIC [Suspect]
     Active Substance: SEMAGLUTIDE
     Indication: Type 2 diabetes mellitus
     Route: 058
     Dates: start: 20240620

REACTIONS (4)
  - Abdominal pain upper [None]
  - Diarrhoea [None]
  - Cholelithiasis [None]
  - Gallbladder enlargement [None]

NARRATIVE: CASE EVENT DATE: 20250325
